FAERS Safety Report 14906684 (Version 1)
Quarter: 2018Q2

REPORT INFORMATION
  Report Type: Spontaneous
  Country: US (occurrence: US)
  Receive Date: 20180517
  Receipt Date: 20180517
  Transmission Date: 20180711
  Serious: No
  Sender: FDA-Public Use
  Company Number: US-SA-2017SA027853

PATIENT
  Age: 78 Year
  Sex: Female

DRUGS (13)
  1. ADVAIR DISKUS [Concomitant]
     Active Substance: FLUTICASONE PROPIONATE\SALMETEROL XINAFOATE
  2. OXYCONTIN [Concomitant]
     Active Substance: OXYCODONE HYDROCHLORIDE
  3. SOLOSTAR [Concomitant]
     Active Substance: DEVICE
     Indication: DIABETES MELLITUS
     Dates: start: 2015
  4. BUMEX [Concomitant]
     Active Substance: BUMETANIDE
  5. OXYCODONE [Concomitant]
     Active Substance: OXYCODONE
  6. METOPROLOL SUCCINATE. [Concomitant]
     Active Substance: METOPROLOL SUCCINATE
  7. LANTUS SOLOSTAR [Suspect]
     Active Substance: INSULIN GLARGINE
     Indication: DIABETES MELLITUS
     Dosage: DOSE:10 UNIT(S)
     Route: 058
     Dates: start: 2015
  8. PANTOPRAZOLE [Concomitant]
     Active Substance: PANTOPRAZOLE
  9. JANTOVEN [Concomitant]
     Active Substance: WARFARIN SODIUM
  10. PREDNISONE. [Concomitant]
     Active Substance: PREDNISONE
  11. LISINOPRIL. [Concomitant]
     Active Substance: LISINOPRIL
  12. PROAIR HFA [Concomitant]
     Active Substance: ALBUTEROL SULFATE
  13. AMIODARONE [Concomitant]
     Active Substance: AMIODARONE

REACTIONS (2)
  - Injection site pain [Unknown]
  - Injection site pain [Recovered/Resolved]

NARRATIVE: CASE EVENT DATE: 20170101
